FAERS Safety Report 21492104 (Version 1)
Quarter: 2022Q4

REPORT INFORMATION
  Report Type: Spontaneous
  Country: US (occurrence: None)
  Receive Date: 20221020
  Receipt Date: 20221020
  Transmission Date: 20230113
  Serious: No
  Sender: FDA-Public Use
  Company Number: None

PATIENT
  Age: 28 Year
  Sex: Female
  Weight: 56.25 kg

DRUGS (1)
  1. DEXTROAMPHET SACCHARAT, AMPHET ASPARTATE, DEXTROAMPHET SULFATE AND AMP [Suspect]
     Active Substance: AMPHETAMINE ASPARTATE\AMPHETAMINE SULFATE\DEXTROAMPHETAMINE SACCHARATE\DEXTROAMPHETAMINE SULFATE
     Indication: Attention deficit hyperactivity disorder
     Dosage: FREQUENCY : TWICE A DAY;?
     Route: 048

REACTIONS (9)
  - Anxiety [None]
  - Tremor [None]
  - Fatigue [None]
  - Muscle spasms [None]
  - Abdominal pain upper [None]
  - Nausea [None]
  - Memory impairment [None]
  - Product substitution issue [None]
  - Product quality issue [None]

NARRATIVE: CASE EVENT DATE: 20221019
